FAERS Safety Report 4636298-4 (Version None)
Quarter: 2005Q2

REPORT INFORMATION
  Report Type: 
  Country: None (occurrence: None)
  Receive Date: 20050415
  Receipt Date: 20040713
  Transmission Date: 20051028
  Serious: No
  Sender: FDA-Public Use
  Company Number: US-BRISTOL-MYERS SQUIBB COMPANY-12640926

PATIENT
  Age: 80 Year
  Sex: Female
  Weight: 76 kg

DRUGS (11)
  1. PARAPLATIN [Suspect]
     Indication: METASTASES TO PERITONEUM
     Route: 042
     Dates: start: 20040622, end: 20040622
  2. TAXOL [Concomitant]
     Dates: start: 20040622, end: 20040622
  3. KYTRIL [Concomitant]
     Indication: PREMEDICATION
     Dates: start: 20040622, end: 20040622
  4. DECADRON [Concomitant]
     Indication: PREMEDICATION
     Dates: start: 20040622, end: 20040622
  5. BENADRYL [Concomitant]
     Indication: PREMEDICATION
     Dates: start: 20040622, end: 20040622
  6. ATIVAN [Concomitant]
     Indication: PREMEDICATION
     Dates: start: 20040622, end: 20040622
  7. TAGAMET [Concomitant]
     Dates: start: 20040622, end: 20040622
  8. M.V.I. [Concomitant]
  9. TOPROL-XL [Concomitant]
  10. COUMADIN [Concomitant]
  11. XANAX [Concomitant]

REACTIONS (1)
  - EXTRAVASATION [None]
